FAERS Safety Report 18379141 (Version 1)
Quarter: 2020Q4

REPORT INFORMATION
  Report Type: Spontaneous
  Country: AT (occurrence: AT)
  Receive Date: 20201013
  Receipt Date: 20201013
  Transmission Date: 20210114
  Serious: Yes (Other)
  Sender: FDA-Public Use
  Company Number: AT-US-PROVELL PHARMACEUTICALS LLC-E2B_90080643

PATIENT
  Sex: Female

DRUGS (1)
  1. EUTHYROX [Suspect]
     Active Substance: LEVOTHYROXINE SODIUM
     Indication: PRODUCT USED FOR UNKNOWN INDICATION
     Dosage: INTRADUODENAL

REACTIONS (3)
  - Incorrect route of product administration [Unknown]
  - Blood thyroid stimulating hormone increased [Unknown]
  - Gastric cancer [Unknown]
